FAERS Safety Report 5289199-5 (Version None)
Quarter: 2007Q1

REPORT INFORMATION
  Report Type: 
  Country: None (occurrence: None)
  Receive Date: 20070124
  Receipt Date: 20060302
  Transmission Date: 20070707
  Serious: No
  Sender: FDA-Public Use
  Company Number: A001-002-006796

PATIENT
  Age: 80 Year
  Sex: Female

DRUGS (6)
  1. ARICEPT [Suspect]
     Indication: AMNESIA
     Dosage: 10 MG, 1 IN 1 D, ORAL
     Route: 048
     Dates: start: 20020501
  2. VERAPAMIL [Concomitant]
  3. FOSAMAX [Concomitant]
  4. NAMENDA [Concomitant]
  5. MULTIVITAMIN [Concomitant]
  6. ASPIRIN [Concomitant]

REACTIONS (2)
  - LOSS OF CONSCIOUSNESS [None]
  - TONIC CONVULSION [None]
